FAERS Safety Report 5241786-6 (Version None)
Quarter: 2007Q1

REPORT INFORMATION
  Report Type: 
  Country: None (occurrence: None)
  Receive Date: 20070220
  Receipt Date: 20070215
  Transmission Date: 20070707
  Serious: Yes (Other)
  Sender: FDA-Public Use
  Company Number: JP-SANOFI-SYNTHELABO-F01200600958

PATIENT
  Sex: Male

DRUGS (3)
  1. LEUCOVORIN CALCIUM [Suspect]
     Dosage: 100MG/BODY
     Route: 042
     Dates: start: 20050714, end: 20050715
  2. FLUOROURACIL [Suspect]
     Dosage: 400MG/BODY IN BOLUS THEN 600MG/BODY AS CONTINUOUS INFUSION
     Route: 042
     Dates: start: 20050714, end: 20050715
  3. OXALIPLATIN [Suspect]
     Indication: RECTAL CANCER
     Dosage: 85MG/BODY
     Route: 042
     Dates: start: 20050714, end: 20050714

REACTIONS (2)
  - CYSTITIS [None]
  - DISEASE PROGRESSION [None]
